FAERS Safety Report 15354991 (Version 1)
Quarter: 2018Q3

REPORT INFORMATION
  Report Type: Spontaneous
  Country: US (occurrence: US)
  Receive Date: 20180830
  Receipt Date: 20180830
  Transmission Date: 20181010
  Serious: Yes (Other)
  Sender: FDA-Public Use
  Company Number: None

PATIENT
  Age: 26 Year
  Sex: Male
  Weight: 78.75 kg

DRUGS (10)
  1. CETIRIZINE [Concomitant]
     Active Substance: CETIRIZINE HYDROCHLORIDE
  2. DOCOSAHEXAENOIC ACID [Concomitant]
     Active Substance: DOCONEXENT
  3. KAVALACTONES [Concomitant]
  4. ESCITALOPRAM [Suspect]
     Active Substance: ESCITALOPRAM OXALATE
     Indication: PERSISTENT DEPRESSIVE DISORDER
     Dosage: ?          QUANTITY:1 TABLET(S);?
     Route: 048
     Dates: start: 20180328, end: 20180801
  5. VITAMIN D3 [Concomitant]
     Active Substance: CHOLECALCIFEROL
  6. FLUTICASONE PEOPIONATE NASAL SPRAY [Concomitant]
  7. PROPIONATE NASAL SPRAY MULTI?VITAMIN [Concomitant]
  8. NAPROXEN. [Concomitant]
     Active Substance: NAPROXEN
  9. ESCITALOPRAM [Suspect]
     Active Substance: ESCITALOPRAM OXALATE
     Indication: ANXIETY DISORDER
     Dosage: ?          QUANTITY:1 TABLET(S);?
     Route: 048
     Dates: start: 20180328, end: 20180801
  10. MELATONIN [Concomitant]
     Active Substance: MELATONIN

REACTIONS (3)
  - Withdrawal syndrome [None]
  - Self-injurious ideation [None]
  - Condition aggravated [None]

NARRATIVE: CASE EVENT DATE: 20180801
